FAERS Safety Report 8587007-8 (Version None)
Quarter: 2012Q3

REPORT INFORMATION
  Report Type: 
  Country: None (occurrence: None)
  Receive Date: 20120810
  Receipt Date: 20120806
  Transmission Date: 20120928
  Serious: Yes (Life-Threatening, Other)
  Sender: FDA-Public Use
  Company Number: US-ASTRAZENECA-2012SE33423

PATIENT
  Age: 55 Year
  Sex: Female
  Weight: 101.6 kg

DRUGS (4)
  1. ARIMIDEX [Suspect]
     Indication: BREAST CANCER
     Route: 048
  2. OXYGEN RELATED TO PNEUMONIA/COPD [Concomitant]
  3. NEBULIZATION [Concomitant]
  4. IV ANTIBIOTIC [Concomitant]

REACTIONS (5)
  - HYPOXIA [None]
  - URINARY TRACT INFECTION [None]
  - COMA [None]
  - PNEUMONIA [None]
  - MEMORY IMPAIRMENT [None]
